FAERS Safety Report 6937484-0 (Version None)
Quarter: 2010Q3

REPORT INFORMATION
  Report Type: 
  Country: None (occurrence: None)
  Receive Date: 20100823
  Receipt Date: 20100823
  Transmission Date: 20110219
  Serious: Yes (Other)
  Sender: FDA-Public Use
  Company Number: None

PATIENT
  Sex: Male
  Weight: 73.0291 kg

DRUGS (2)
  1. LIPITOR [Suspect]
     Indication: CORONARY ARTERIAL STENT INSERTION
     Dosage: 80 MG 1 DAILY PO
     Route: 048
     Dates: start: 20100730, end: 20100810
  2. LIPITOR [Suspect]
     Indication: CORONARY ARTERY DISEASE
     Dosage: 80 MG 1 DAILY PO
     Route: 048
     Dates: start: 20100730, end: 20100810

REACTIONS (5)
  - ASTHENIA [None]
  - DIZZINESS [None]
  - DYSPEPSIA [None]
  - MUSCLE SPASMS [None]
  - MYALGIA [None]
